FAERS Safety Report 12344030 (Version 3)
Quarter: 2016Q2

REPORT INFORMATION
  Report Type: Spontaneous
  Country: US (occurrence: US)
  Receive Date: 20160507
  Receipt Date: 20160613
  Transmission Date: 20160815
  Serious: Yes (Hospitalization)
  Sender: FDA-Public Use
  Company Number: US-JNJFOC-20160414324

PATIENT
  Age: 57 Year
  Sex: Male

DRUGS (6)
  1. MOTRIN [Suspect]
     Active Substance: IBUPROFEN
     Indication: PRODUCT USED FOR UNKNOWN INDICATION
     Route: 065
     Dates: end: 201511
  2. MOTRIN [Suspect]
     Active Substance: IBUPROFEN
     Route: 065
  3. XARELTO [Suspect]
     Active Substance: RIVAROXABAN
     Indication: ATRIAL FIBRILLATION
     Dosage: IN VARYING DOSES OF 15 MG AND 20 MG
     Route: 048
     Dates: start: 20150301, end: 20151127
  4. XARELTO [Suspect]
     Active Substance: RIVAROXABAN
     Indication: CARDIAC DISORDER
     Dosage: IN VARYING DOSES OF 15 MG AND 20 MG
     Route: 048
     Dates: start: 20150301, end: 20151127
  5. XARELTO [Suspect]
     Active Substance: RIVAROXABAN
     Indication: ATRIAL FIBRILLATION
     Dosage: IN VARYING DOSES OF 15 MG AND 20 MG
     Route: 048
     Dates: start: 201302
  6. XARELTO [Suspect]
     Active Substance: RIVAROXABAN
     Indication: CARDIAC DISORDER
     Dosage: IN VARYING DOSES OF 15 MG AND 20 MG
     Route: 048
     Dates: start: 201302

REACTIONS (3)
  - Renal injury [Recovering/Resolving]
  - Shock haemorrhagic [Recovered/Resolved]
  - Gastric ulcer haemorrhage [Recovering/Resolving]

NARRATIVE: CASE EVENT DATE: 201511
